FAERS Safety Report 12212124 (Version 3)
Quarter: 2016Q1

REPORT INFORMATION
  Report Type: Spontaneous
  Country: US (occurrence: US)
  Receive Date: 20160325
  Receipt Date: 20160331
  Transmission Date: 20160526
  Serious: No
  Sender: FDA-Public Use
  Company Number: US-BAXALTA-2016BLT001916

PATIENT
  Age: 23 Year
  Sex: Male

DRUGS (40)
  1. PREVACID [Concomitant]
     Active Substance: LANSOPRAZOLE
     Indication: PRODUCT USED FOR UNKNOWN INDICATION
     Dosage: 30 MG, 1X A DAY
     Route: 065
     Dates: start: 20150422
  2. DIASTAT ACUDIAL [Concomitant]
     Active Substance: DIAZEPAM
     Indication: PRODUCT USED FOR UNKNOWN INDICATION
     Dosage: AS DIRECTED
     Dates: start: 20150422
  3. FLOMAX [Interacting]
     Active Substance: TAMSULOSIN HYDROCHLORIDE
     Indication: PRODUCT USED FOR UNKNOWN INDICATION
     Dosage: 5 ML, 1X A DAY AT BEDTIME
     Route: 065
     Dates: start: 20150422
  4. KEPPRA [Concomitant]
     Active Substance: LEVETIRACETAM
     Indication: PRODUCT USED FOR UNKNOWN INDICATION
     Dosage: 9 ML, 3X A DAY
     Route: 065
     Dates: start: 20150422
  5. TRANXENE-T [Concomitant]
     Indication: SEIZURE CLUSTER
     Dosage: 1.5 TABS PM AND AS NEEDED
     Route: 065
     Dates: start: 20150422
  6. HYDROCODONE-IBUPROFEN [Concomitant]
     Indication: PAIN
     Dosage: 1 TAB, AS NEEDED EVERY 6 HOURS
     Route: 065
     Dates: start: 20150422
  7. KLOR-CON [Concomitant]
     Active Substance: POTASSIUM CHLORIDE
     Indication: PRODUCT USED FOR UNKNOWN INDICATION
     Dosage: 4-6 PACKETS ON DAYS OF NO TPN
     Route: 065
     Dates: start: 20150422
  8. ACTICLATE [Concomitant]
     Active Substance: DOXYCYCLINE HYCLATE
     Indication: PRODUCT USED FOR UNKNOWN INDICATION
     Dosage: 10 ML, 1X A DAY
     Route: 065
     Dates: start: 20160125
  9. GAMMAKED [Concomitant]
     Active Substance: HUMAN IMMUNOGLOBULIN G
     Indication: PRODUCT USED FOR UNKNOWN INDICATION
     Dosage: UNK
     Route: 065
     Dates: start: 20160315
  10. HYQVIA [Suspect]
     Active Substance: HUMAN IMMUNOGLOBULIN G\HYALURONIDASE RECOMBINANT HUMAN
     Indication: PRIMARY IMMUNODEFICIENCY SYNDROME
     Dosage: 30 G, 1X A WEEK
     Route: 058
     Dates: start: 20150721, end: 20150721
  11. HYQVIA [Suspect]
     Active Substance: HUMAN IMMUNOGLOBULIN G\HYALURONIDASE RECOMBINANT HUMAN
     Indication: PRIMARY IMMUNODEFICIENCY SYNDROME
     Dosage: 30 G, 1X A WEEK
     Route: 058
     Dates: start: 20160307, end: 20160307
  12. ALBUTEROL SULFATE. [Concomitant]
     Active Substance: ALBUTEROL SULFATE
     Indication: WHEEZING
  13. ALBUTEROL SULFATE. [Concomitant]
     Active Substance: ALBUTEROL SULFATE
     Indication: CHEST DISCOMFORT
  14. AMITRIPTYLINE HCL [Concomitant]
     Active Substance: AMITRIPTYLINE
     Indication: PRODUCT USED FOR UNKNOWN INDICATION
     Dosage: 40 MG, 2X A DAY
     Route: 065
     Dates: start: 20150422
  15. CELEBREX [Concomitant]
     Active Substance: CELECOXIB
     Indication: PRODUCT USED FOR UNKNOWN INDICATION
     Dosage: 100 MG, 2X A DAY
     Route: 065
     Dates: start: 20150422
  16. ALDACTONE [Concomitant]
     Active Substance: SPIRONOLACTONE
     Indication: PRODUCT USED FOR UNKNOWN INDICATION
     Dosage: 25 MG, 2X A DAY
     Route: 065
     Dates: start: 20150422
  17. SOLU-CORTEF [Concomitant]
     Active Substance: HYDROCORTISONE SODIUM SUCCINATE
     Indication: PRODUCT USED FOR UNKNOWN INDICATION
     Dosage: 100 MG VIAL 10MG AM .2ML AND 5MG, 1ML IV
     Route: 065
     Dates: start: 20150422
  18. HYDROXYZINE [Concomitant]
     Active Substance: HYDROXYZINE\HYDROXYZINE HYDROCHLORIDE
     Indication: URTICARIA
     Dosage: 25N MG, EVERY 4-6 HOURS AS NEEDED
     Route: 065
     Dates: start: 20150422
  19. ADENOSINE PHOSPHATE [Concomitant]
     Active Substance: ADENOSINE PHOSPHATE
     Indication: PRODUCT USED FOR UNKNOWN INDICATION
     Dosage: 10 ML, 1X A DAY
     Route: 065
     Dates: start: 20151019
  20. DIAMOX                             /00016901/ [Concomitant]
     Active Substance: ACETAZOLAMIDE
     Indication: PRODUCT USED FOR UNKNOWN INDICATION
     Dosage: 1/2 TAB IN THE AM, AFTERNOON, AND PM (EXTENDED RELEASE 12 HR CAPS)
     Route: 065
  21. FLUTICASONE PROPIONATE. [Concomitant]
     Active Substance: FLUTICASONE PROPIONATE
     Indication: PRODUCT USED FOR UNKNOWN INDICATION
     Dosage: 1-2 SPRAYS EACH NOSTRIL DAILY
     Route: 045
     Dates: start: 20150422
  22. FAMOTIDINE ACID REDUCER [Concomitant]
     Indication: PRODUCT USED FOR UNKNOWN INDICATION
     Dosage: 30 MG VIAL IV 2ML PER TPN BAG, UNK
     Route: 042
     Dates: start: 20150422
  23. TPN [Concomitant]
     Active Substance: AMINO ACIDS\DEXTROSE\ELECTROLYTES NOS\SOYBEAN OIL
     Indication: PRODUCT USED FOR UNKNOWN INDICATION
     Dosage: WITH 200MEQ PTASSIUM CHLORIDE
     Route: 065
     Dates: start: 20150422
  24. HYQVIA [Suspect]
     Active Substance: HUMAN IMMUNOGLOBULIN G\HYALURONIDASE RECOMBINANT HUMAN
     Indication: ENCEPHALOPATHY
  25. AZELASTINE HCL [Concomitant]
     Active Substance: AZELASTINE HYDROCHLORIDE
     Indication: PRODUCT USED FOR UNKNOWN INDICATION
     Dosage: 2 SPRAYS IN EACH NOSTRIL 2X A DAY
     Route: 045
     Dates: start: 20150422
  26. PULMICORT TURBUHALER [Concomitant]
     Active Substance: BUDESONIDE
     Indication: PRODUCT USED FOR UNKNOWN INDICATION
     Dosage: 1 AMPULE 1-4 TIMES A DAY AS DIRECTED
     Route: 065
     Dates: start: 20150422
  27. VIMPAT [Concomitant]
     Active Substance: LACOSAMIDE
     Indication: PRODUCT USED FOR UNKNOWN INDICATION
     Dosage: 100 MG, 2X A DAY VIA G-TUBE
     Route: 065
     Dates: start: 20150422
  28. ZOFRAN [Concomitant]
     Active Substance: ONDANSETRON HYDROCHLORIDE
     Indication: PRODUCT USED FOR UNKNOWN INDICATION
     Dosage: UNK UNK, AS DIRECTED
     Route: 065
     Dates: start: 20150422
  29. HYDROXYZINE [Concomitant]
     Active Substance: HYDROXYZINE\HYDROXYZINE HYDROCHLORIDE
     Indication: PREMEDICATION
     Dosage: 12.5 MG BEFORE IVIG
     Route: 065
  30. FORADIL [Concomitant]
     Active Substance: FORMOTEROL FUMARATE
     Indication: PRODUCT USED FOR UNKNOWN INDICATION
     Dosage: 1 INHALATION TWICE A DAY WITH PULMICORT USE IN 3 MLS NORMAL SALINE, 2X A DAY
     Route: 055
     Dates: start: 20150422
  31. LAMICTAL [Concomitant]
     Active Substance: LAMOTRIGINE
     Indication: PRODUCT USED FOR UNKNOWN INDICATION
     Dosage: 2 TABS 1/2 AM, 1 TAB AT NOON, 1.5 TAB AT 4PM, 2 TABS QPM
     Route: 065
     Dates: start: 20150422
  32. BACTROBAN [Concomitant]
     Active Substance: MUPIROCIN\MUPIROCIN CALCIUM
     Indication: PRODUCT USED FOR UNKNOWN INDICATION
     Dosage: APPLY AS DIRECTED
     Route: 061
     Dates: start: 20150422
  33. CHILDRENS MOTRIN [Concomitant]
     Active Substance: IBUPROFEN
     Indication: PRODUCT USED FOR UNKNOWN INDICATION
     Dosage: 20 ML, 3X A DAY AS NEEDED
     Route: 065
     Dates: start: 20150422
  34. EPIPEN [Concomitant]
     Active Substance: EPINEPHRINE
     Indication: HYPERSENSITIVITY
     Dosage: INJECT INTO LATERAL THIGH, CALL 911 AFTER USE
     Route: 030
     Dates: start: 20150422
  35. TERBUTALINE SULFATE. [Concomitant]
     Active Substance: TERBUTALINE SULFATE
     Dosage: 3 AMPULES EVERY 2-4 HRS AS NEEDED
     Route: 055
     Dates: start: 20150422
  36. ALLEGRA ALLERGY [Concomitant]
     Active Substance: FEXOFENADINE HYDROCHLORIDE
     Indication: PRODUCT USED FOR UNKNOWN INDICATION
     Dosage: 1 TABLET 1X A DAY
     Route: 048
     Dates: start: 20150422
  37. ALBUTEROL SULFATE. [Concomitant]
     Active Substance: ALBUTEROL SULFATE
     Indication: COUGH
     Dosage: 1 VIAL EVERY 4-6 HRS AS NEEDED
     Route: 055
     Dates: start: 20150422
  38. ALBUTEROL SULFATE. [Concomitant]
     Active Substance: ALBUTEROL SULFATE
     Indication: DYSPNOEA
  39. CARNITOR SF [Concomitant]
     Active Substance: LEVOCARNITINE
     Indication: PRODUCT USED FOR UNKNOWN INDICATION
     Dosage: 3 ML, 3X A DAY
     Route: 065
     Dates: start: 20150422
  40. QVAR [Concomitant]
     Active Substance: BECLOMETHASONE DIPROPIONATE
     Indication: PRODUCT USED FOR UNKNOWN INDICATION
     Dosage: 2-4 INHALATIONS 2X A DAY
     Route: 055
     Dates: start: 20150422

REACTIONS (9)
  - Dyspnoea [Recovered/Resolved]
  - Respiratory symptom [Recovered/Resolved]
  - Infusion site pruritus [Recovered/Resolved]
  - Wheezing [Recovered/Resolved]
  - Induration [Recovered/Resolved]
  - Infusion site urticaria [Recovered/Resolved]
  - Urticaria [Recovered/Resolved]
  - Cough [Recovered/Resolved]
  - Chest discomfort [Recovered/Resolved]

NARRATIVE: CASE EVENT DATE: 20160222
